FAERS Safety Report 4331006-9 (Version None)
Quarter: 2004Q1

REPORT INFORMATION
  Report Type: 
  Country: None (occurrence: None)
  Receive Date: 20040331
  Receipt Date: 20040317
  Transmission Date: 20041129
  Serious: Yes (Other)
  Sender: FDA-Public Use
  Company Number: 2004018430

PATIENT
  Age: 5 Year
  Sex: Female

DRUGS (1)
  1. GEODON [Suspect]
     Indication: ILL-DEFINED DISORDER
     Dosage: 120 MG (BID), ORAL
     Route: 048

REACTIONS (7)
  - CONFUSIONAL STATE [None]
  - CONVULSION [None]
  - DYSTONIA [None]
  - EYE ROLLING [None]
  - FALL [None]
  - HEART RATE ABNORMAL [None]
  - INCONTINENCE [None]
